FAERS Safety Report 8375201-0 (Version None)
Quarter: 2012Q2

REPORT INFORMATION
  Report Type: 
  Country: None (occurrence: None)
  Receive Date: 20120522
  Receipt Date: 20120517
  Transmission Date: 20120825
  Serious: Yes (Other)
  Sender: FDA-Public Use
  Company Number: US-AMGEN-USASP2012031390

PATIENT
  Age: 75 Year
  Sex: Female

DRUGS (7)
  1. SPIRIVA [Concomitant]
     Indication: ASTHMA
  2. B12                                /00056201/ [Concomitant]
  3. PROLIA [Suspect]
     Indication: OSTEOPOROSIS POSTMENOPAUSAL
     Dosage: 60 MG, Q6MO
     Dates: start: 20111012
  4. AZOR                               /00595201/ [Concomitant]
  5. SYMBICORT [Concomitant]
     Indication: ASTHMA
  6. PRISTIQ [Concomitant]
  7. MULTIVITAMIN                       /00097801/ [Concomitant]

REACTIONS (4)
  - FEELING ABNORMAL [None]
  - PALPITATIONS [None]
  - POLLAKIURIA [None]
  - FATIGUE [None]
